FAERS Safety Report 8059092-3 (Version None)
Quarter: 2012Q1

REPORT INFORMATION
  Report Type: 
  Country: None (occurrence: None)
  Receive Date: 20120120
  Receipt Date: 20120110
  Transmission Date: 20120608
  Serious: Yes (Hospitalization)
  Sender: FDA-Public Use
  Company Number: US-JNJFOC-20110312856

PATIENT
  Age: 35 Year
  Sex: Female
  Weight: 92 kg

DRUGS (1)
  1. PARACETAMOL/DIPHENHYDRAMINE [Suspect]
     Indication: PRODUCT USED FOR UNKNOWN INDICATION

REACTIONS (5)
  - INTENTIONAL OVERDOSE [None]
  - NAUSEA [None]
  - ASPARTATE AMINOTRANSFERASE INCREASED [None]
  - INTENTIONAL SELF-INJURY [None]
  - VOMITING [None]
